FAERS Safety Report 22183354 (Version 2)
Quarter: 2023Q2

REPORT INFORMATION
  Report Type: Spontaneous
  Country: US (occurrence: US)
  Receive Date: 20230406
  Receipt Date: 20230425
  Transmission Date: 20230721
  Serious: No
  Sender: FDA-Public Use
  Company Number: US-ALLERGAN-2304936US

PATIENT
  Age: 77 Year
  Sex: Female

DRUGS (1)
  1. QULIPTA [Suspect]
     Active Substance: ATOGEPANT
     Indication: Rheumatoid arthritis
     Dosage: UNK
     Dates: start: 20210226

REACTIONS (5)
  - Herpes zoster [Not Recovered/Not Resolved]
  - Hypoaesthesia [Unknown]
  - Lacrimation increased [Unknown]
  - Hypoaesthesia oral [Unknown]
  - Off label use [Unknown]

NARRATIVE: CASE EVENT DATE: 20220901
